FAERS Safety Report 10074185 (Version 2)
Quarter: 2014Q2

REPORT INFORMATION
  Report Type: Report from Study
  Country: US (occurrence: US)
  Receive Date: 20140412
  Receipt Date: 20140506
  Transmission Date: 20141212
  Serious: Yes (Other)
  Sender: FDA-Public Use
  Company Number: PHEH2014US007028

PATIENT
  Sex: Female

DRUGS (23)
  1. TASIGNA [Suspect]
     Indication: CHRONIC MYELOID LEUKAEMIA
     Dosage: 200 MG
     Dates: start: 2012
  2. HYDRA [Concomitant]
  3. COMBIVENT [Concomitant]
     Dosage: 1 PUFF
  4. XANAX [Concomitant]
  5. ASA [Concomitant]
  6. VIT D [Concomitant]
  7. PLAVIX [Concomitant]
  8. FELODIPINE [Concomitant]
  9. FLONASE [Concomitant]
  10. LASIX [Concomitant]
  11. LANTUS [Concomitant]
  12. HUMULIN S [Concomitant]
  13. LEVOTHYROXINE [Concomitant]
  14. LISINOPRIL [Concomitant]
  15. MAGNESIUM OXIDE [Concomitant]
  16. SINGULAIR [Concomitant]
  17. IRON [Concomitant]
  18. CENTRUM [Concomitant]
  19. POTASSIUM [Concomitant]
  20. PROMETHAZINE [Concomitant]
  21. SIMVASTATIN [Concomitant]
  22. METOPROLOL [Concomitant]
  23. TYLENOL [Concomitant]

REACTIONS (3)
  - Malignant neoplasm progression [Unknown]
  - Chronic myeloid leukaemia [Unknown]
  - Drug ineffective [Unknown]
